FAERS Safety Report 15264609 (Version 1)
Quarter: 2018Q3

REPORT INFORMATION
  Report Type: Spontaneous
  Country: US (occurrence: US)
  Receive Date: 20180723
  Receipt Date: 20180723
  Transmission Date: 20181010
  Serious: Yes (Hospitalization)
  Sender: FDA-Public Use
  Company Number: None

PATIENT
  Age: 25 Year
  Sex: Female
  Weight: 56.7 kg

DRUGS (3)
  1. CYTOMEL [Concomitant]
     Active Substance: LIOTHYRONINE SODIUM
  2. PHENTERMINE. [Suspect]
     Active Substance: PHENTERMINE
     Indication: WEIGHT INCREASED
     Dosage: ?          QUANTITY:1 CAPSULE(S);?
     Route: 048
     Dates: start: 20180511, end: 20180714
  3. SYNTHROID [Concomitant]
     Active Substance: LEVOTHYROXINE SODIUM

REACTIONS (2)
  - Nephrolithiasis [None]
  - Pain [None]

NARRATIVE: CASE EVENT DATE: 20180721
